FAERS Safety Report 8407689 (Version 2)
Quarter: 2013Q2

REPORT INFORMATION
  Report Type: Spontaneous
  Country: BR (occurrence: BR)
  Receive Date: 20120215
  Receipt Date: 20130415
  Transmission Date: 20140414
  Serious: Yes (Other)
  Sender: FDA-Public Use
  Company Number: PHHY2012BR009363

PATIENT
  Age: 11 Year
  Sex: Male

DRUGS (2)
  1. RITALINA [Suspect]
     Indication: ATTENTION DEFICIT/HYPERACTIVITY DISORDER
     Dosage: 0.5 DF, DAILY (IN THE MORNING)
     Route: 048
  2. RITALINA [Suspect]
     Indication: DYSCALCULIA

REACTIONS (6)
  - Dyscalculia [Recovering/Resolving]
  - Antisocial behaviour [Recovering/Resolving]
  - Attention deficit/hyperactivity disorder [Unknown]
  - Growth retardation [Recovered/Resolved]
  - Decreased appetite [Not Recovered/Not Resolved]
  - Weight decreased [Recovering/Resolving]
